FAERS Safety Report 6730693-5 (Version None)
Quarter: 2010Q2

REPORT INFORMATION
  Report Type: 
  Country: None (occurrence: None)
  Receive Date: 20100518
  Receipt Date: 20100512
  Transmission Date: 20101027
  Serious: Yes (Other)
  Sender: FDA-Public Use
  Company Number: GB-MERCK-1003GBR00023

PATIENT
  Age: 72 Year
  Sex: Female
  Weight: 96 kg

DRUGS (11)
  1. ZOCOR [Suspect]
     Route: 048
  2. ATORVASTATIN [Suspect]
     Route: 065
     Dates: end: 20040201
  3. FENOFIBRATE [Suspect]
     Route: 065
     Dates: start: 20030501, end: 20060909
  4. FENOFIBRATE [Suspect]
     Route: 065
     Dates: start: 20060901
  5. METFORMIN [Concomitant]
     Route: 065
  6. PIOGLITAZONE HYDROCHLORIDE [Suspect]
     Indication: TYPE 2 DIABETES MELLITUS
     Route: 065
     Dates: start: 20070201, end: 20070501
  7. ROSIGLITAZONE MALEATE [Suspect]
     Indication: TYPE 2 DIABETES MELLITUS
     Route: 065
     Dates: start: 20050301, end: 20050601
  8. ROSIGLITAZONE MALEATE [Suspect]
     Route: 065
     Dates: start: 20050601, end: 20060901
  9. ROSUVASTATIN CALCIUM [Concomitant]
     Route: 065
     Dates: start: 20040201, end: 20050601
  10. ROSUVASTATIN CALCIUM [Concomitant]
     Route: 065
     Dates: start: 20050601, end: 20060801
  11. ROSUVASTATIN CALCIUM [Concomitant]
     Route: 065
     Dates: start: 20060101, end: 20060101

REACTIONS (2)
  - HIGH DENSITY LIPOPROTEIN DECREASED [None]
  - MYALGIA [None]
